FAERS Safety Report 8446364-3 (Version None)
Quarter: 2012Q2

REPORT INFORMATION
  Report Type: 
  Country: None (occurrence: None)
  Receive Date: 20120618
  Receipt Date: 20120614
  Transmission Date: 20120825
  Serious: Yes (Hospitalization, Other)
  Sender: FDA-Public Use
  Company Number: SE-AMGEN-SWECT2012036960

PATIENT
  Age: 77 Year
  Sex: Female

DRUGS (2)
  1. MORPHINE [Concomitant]
  2. DENOSUMAB [Suspect]
     Indication: OSTEOPOROSIS POSTMENOPAUSAL
     Dosage: 1 ML, Q6MO
     Route: 058
     Dates: start: 20080415

REACTIONS (1)
  - SPINAL COLUMN STENOSIS [None]
